FAERS Safety Report 19688467 (Version 1)
Quarter: 2021Q3

REPORT INFORMATION
  Report Type: Report from Study
  Country: US (occurrence: US)
  Receive Date: 20210811
  Receipt Date: 20210811
  Transmission Date: 20211014
  Serious: No
  Sender: FDA-Public Use
  Company Number: NVSC2021US175452

PATIENT
  Sex: Female

DRUGS (1)
  1. COSENTYX [Suspect]
     Active Substance: SECUKINUMAB
     Indication: PSORIASIS
     Dosage: 300 MG, QW (Q WEEKLY X 5 WEEKS THEN Q 4 WEEKS)
     Route: 058
     Dates: start: 202106

REACTIONS (2)
  - Injection site pain [Unknown]
  - Therapeutic response delayed [Unknown]
